FAERS Safety Report 20536426 (Version 1)
Quarter: 2022Q1

REPORT INFORMATION
  Report Type: Spontaneous
  Country: ES (occurrence: ES)
  Receive Date: 20220302
  Receipt Date: 20220302
  Transmission Date: 20220423
  Serious: Yes (Other)
  Sender: FDA-Public Use
  Company Number: None

PATIENT
  Age: 63 Year
  Sex: Male

DRUGS (12)
  1. TRAMADOL [Suspect]
     Active Substance: TRAMADOL
     Indication: Herpes zoster
     Dosage: 100 MILLIGRAM
     Route: 048
     Dates: start: 20211004, end: 20211011
  2. RAMIPRIL [Concomitant]
     Active Substance: RAMIPRIL
     Indication: Essential hypertension
     Dosage: 5 MILLIGRAM
     Route: 048
     Dates: start: 20200811
  3. EMLA [Concomitant]
     Active Substance: LIDOCAINE\PRILOCAINE
     Indication: Herpes zoster
     Dosage: UNK
     Route: 061
     Dates: start: 20210920
  4. OMEPRAZOLE [Concomitant]
     Active Substance: OMEPRAZOLE
     Indication: Gastrooesophageal reflux disease
     Dosage: 40 MILLIGRAM
     Route: 048
     Dates: start: 20140128
  5. DEXKETOPROFEN TROMETAMOL [Concomitant]
     Active Substance: DEXKETOPROFEN TROMETAMOL
     Indication: Herpes zoster
     Dosage: 25 MILLIGRAM
     Route: 048
     Dates: start: 20210910, end: 20211009
  6. BISOPROLOL [Concomitant]
     Active Substance: BISOPROLOL
     Indication: Cerebrovascular disorder
     Dosage: 5 MILLIGRAM
     Route: 048
     Dates: start: 20130412
  7. ADVENTAN [Concomitant]
     Indication: Herpes zoster
     Dosage: 1 DOSAGE FORM, 1/DAY
     Route: 061
     Dates: start: 20210911, end: 20211010
  8. OZEMPIC [Concomitant]
     Active Substance: SEMAGLUTIDE
     Indication: Type 2 diabetes mellitus
     Dosage: 1 MILLIGRAM, 1/WEEK
     Route: 058
     Dates: start: 20201203
  9. ATORVASTATIN [Concomitant]
     Active Substance: ATORVASTATIN
     Indication: Type V hyperlipidaemia
     Dosage: 10 MILLIGRAM
     Route: 048
     Dates: start: 20200922
  10. METFORMIN HYDROCHLORIDE [Concomitant]
     Active Substance: METFORMIN HYDROCHLORIDE
     Indication: Type 2 diabetes mellitus
     Dosage: 850 MILLIGRAM
     Route: 048
     Dates: start: 20200708
  11. SERETIDE [Concomitant]
     Active Substance: FLUTICASONE PROPIONATE\SALMETEROL XINAFOATE
     Indication: Bronchitis
     Dosage: 2 DOSAGE FORM, EVERY 12 HRS
     Route: 050
     Dates: start: 20160208
  12. CITALOPRAM [Concomitant]
     Active Substance: CITALOPRAM HYDROBROMIDE
     Indication: Cough
     Dosage: 30 MILLIGRAM
     Route: 048
     Dates: start: 20190412

REACTIONS (2)
  - Faecaloma [Recovering/Resolving]
  - Constipation [Recovering/Resolving]

NARRATIVE: CASE EVENT DATE: 20211010
